FAERS Safety Report 16348926 (Version 2)
Quarter: 2019Q3

REPORT INFORMATION
  Report Type: Spontaneous
  Country: US (occurrence: US)
  Receive Date: 20190523
  Receipt Date: 20190723
  Transmission Date: 20191004
  Serious: Yes (Life-Threatening, Hospitalization)
  Sender: FDA-Public Use
  Company Number: US-CATALYST PHARMACEUTICALS, INC-2019CAT00081

PATIENT
  Age: 88 Year
  Sex: Male
  Weight: 70.3 kg

DRUGS (5)
  1. HYDROCODONE [Concomitant]
     Active Substance: HYDROCODONE
     Dosage: 1 TABLETS, 3X/DAY (EVERY 8 HOURS)
  2. UNSPECIFIED MEDICATIONS [Concomitant]
     Active Substance: UNSPECIFIED INGREDIENT
  3. FIRDAPSE [Suspect]
     Active Substance: AMIFAMPRIDINE
     Indication: MYASTHENIC SYNDROME
     Dosage: 20 MG, 3X/DAY
     Route: 048
     Dates: start: 20190219
  4. UNSPECIFIED CHEMOTHERAPY [Suspect]
     Active Substance: UNSPECIFIED INGREDIENT
     Indication: LUNG NEOPLASM MALIGNANT
     Dosage: UNK
     Dates: start: 201811
  5. FIRDAPSE [Suspect]
     Active Substance: AMIFAMPRIDINE
     Indication: MUSCULAR WEAKNESS

REACTIONS (6)
  - Weight decreased [Not Recovered/Not Resolved]
  - Red blood cell count decreased [Recovered/Resolved]
  - Peripheral swelling [Not Recovered/Not Resolved]
  - Drug ineffective [Not Recovered/Not Resolved]
  - Product dose omission [Unknown]
  - Small cell lung cancer metastatic [Not Recovered/Not Resolved]

NARRATIVE: CASE EVENT DATE: 2019
